FAERS Safety Report 4577732-8 (Version None)
Quarter: 2005Q1

REPORT INFORMATION
  Report Type: 
  Country: None (occurrence: None)
  Receive Date: 20050208
  Receipt Date: 20050128
  Transmission Date: 20050727
  Serious: Yes (Hospitalization)
  Sender: FDA-Public Use
  Company Number: 2003-05989

PATIENT
  Age: 39 Year
  Sex: Male
  Weight: 60 kg

DRUGS (5)
  1. VIREAD [Suspect]
     Indication: HIV INFECTION
     Dosage: 300 MG , ONCE A DAY, ORAL
     Route: 048
     Dates: start: 20030521, end: 20030611
  2. COMBIVIR [Concomitant]
  3. VIRAMUNE [Concomitant]
  4. ZIAGEN [Concomitant]
  5. VIDEX [Concomitant]

REACTIONS (10)
  - HAEMATURIA [None]
  - HAEMODIALYSIS [None]
  - LEUKOCYTURIA [None]
  - METABOLIC ACIDOSIS [None]
  - PERITONEAL DIALYSIS [None]
  - RENAL FAILURE ACUTE [None]
  - RENAL INTERSTITIAL FIBROSIS [None]
  - RENAL TUBULAR NECROSIS [None]
  - TUBULOINTERSTITIAL NEPHRITIS [None]
  - VOMITING [None]
